FAERS Safety Report 22187408 (Version 2)
Quarter: 2023Q2

REPORT INFORMATION
  Report Type: Spontaneous
  Country: US (occurrence: US)
  Receive Date: 20230407
  Receipt Date: 20230413
  Transmission Date: 20230722
  Serious: No
  Sender: FDA-Public Use
  Company Number: US-PFIZER INC-PV202300062152

PATIENT
  Age: 40 Year
  Sex: Male

DRUGS (2)
  1. XELJANZ XR [Interacting]
     Active Substance: TOFACITINIB CITRATE
  2. ENTYVIO [Interacting]
     Active Substance: VEDOLIZUMAB
     Dosage: UNK

REACTIONS (2)
  - Drug interaction [Unknown]
  - Circumstance or information capable of leading to medication error [Unknown]
